FAERS Safety Report 9511295 (Version 1)
Quarter: 2013Q3

REPORT INFORMATION
  Report Type: Spontaneous
  Country: US (occurrence: US)
  Receive Date: 20130910
  Receipt Date: 20130910
  Transmission Date: 20140515
  Serious: Yes (Hospitalization)
  Sender: FDA-Public Use
  Company Number: US-JNJFOC-20130814495

PATIENT
  Age: 76 Year
  Sex: Male
  Weight: 63.3 kg

DRUGS (7)
  1. LEVAQUIN [Suspect]
     Indication: PRODUCT USED FOR UNKNOWN INDICATION
     Route: 065
     Dates: start: 20120302, end: 20120308
  2. AXITINIB [Suspect]
     Indication: METASTATIC RENAL CELL CARCINOMA
     Dosage: POST LEAD-IN PERIOD
     Route: 048
     Dates: start: 20091117, end: 20120319
  3. ARICEPT [Concomitant]
     Indication: DEMENTIA
     Route: 048
     Dates: start: 20100501
  4. FLOMAX [Concomitant]
     Indication: BENIGN PROSTATIC HYPERPLASIA
     Route: 048
     Dates: start: 2006
  5. COREG [Concomitant]
     Indication: HYPERTENSION
     Route: 048
     Dates: start: 201006
  6. NAMENDA [Concomitant]
     Indication: DEMENTIA
     Route: 048
     Dates: start: 20101117
  7. LIPITOR [Concomitant]
     Indication: BLOOD CHOLESTEROL INCREASED
     Route: 048
     Dates: start: 2007, end: 20120313

REACTIONS (7)
  - Pneumonia [Recovered/Resolved]
  - Diarrhoea [Recovering/Resolving]
  - Encephalopathy [Recovered/Resolved]
  - Decreased appetite [Recovered/Resolved]
  - Pyrexia [Recovered/Resolved]
  - Hyponatraemia [Recovered/Resolved]
  - Dyspnoea [Recovered/Resolved]
